FAERS Safety Report 11313374 (Version 5)
Quarter: 2016Q1

REPORT INFORMATION
  Report Type: Report from Study
  Country: DE (occurrence: DE)
  Receive Date: 20150727
  Receipt Date: 20160205
  Transmission Date: 20160525
  Serious: Yes (Hospitalization)
  Sender: FDA-Public Use
  Company Number: DE-BAXALTA-2015BLT000620

PATIENT
  Age: 18 Year
  Sex: Male
  Weight: 76.6 kg

DRUGS (12)
  1. FEIBA NF [Suspect]
     Active Substance: ANTI-INHIBITOR COAGULANT COMPLEX
     Indication: PROPHYLAXIS
     Dosage: 5000 IU, EVERY 2 DY
     Route: 042
     Dates: start: 20150710, end: 20150710
  2. FERROSANOL [Concomitant]
     Active Substance: FERROUS GLUCONATE
     Indication: IRON DEFICIENCY
     Dosage: 100 MG, 2X A DAY
     Route: 048
     Dates: start: 20150209
  3. ARCOXIA [Concomitant]
     Active Substance: ETORICOXIB
     Indication: ARTHRITIS
     Dosage: 90 MG, AS NEEDED
     Route: 048
     Dates: start: 20141228
  4. CEFUROXIM [Concomitant]
     Active Substance: CEFUROXIME
     Indication: DEVICE RELATED INFECTION
     Dosage: UNK UNK, AS NEEDED
     Route: 048
     Dates: start: 20141224
  5. NEXIUM [Concomitant]
     Active Substance: ESOMEPRAZOLE MAGNESIUM
     Indication: GASTROINTESTINAL HAEMORRHAGE
     Dosage: 40 MG, 2X A DAY
     Route: 048
     Dates: start: 20150609, end: 20150616
  6. PANTOZOL [Concomitant]
     Active Substance: PANTOPRAZOLE SODIUM
     Indication: GASTRITIS
     Dosage: 40 MG, 2X A DAY
     Route: 048
     Dates: start: 20150209
  7. METRONIDAZOL [Concomitant]
     Active Substance: METRONIDAZOLE
     Indication: HELICOBACTER INFECTION
     Dosage: 400 MG, 2X A DAY
     Route: 048
     Dates: start: 20150609, end: 20150616
  8. FEIBA NF [Suspect]
     Active Substance: ANTI-INHIBITOR COAGULANT COMPLEX
     Indication: HAEMOPHILIA A WITH ANTI FACTOR VIII
  9. ROCEPHIN [Concomitant]
     Active Substance: CEFTRIAXONE SODIUM
     Indication: DEVICE RELATED INFECTION
     Dosage: UNK
     Route: 042
     Dates: start: 20141224
  10. CLARITHROMYCIN. [Concomitant]
     Active Substance: CLARITHROMYCIN
     Indication: GASTROINTESTINAL HAEMORRHAGE
     Dosage: 250 MG, 2X A DAY
     Route: 048
     Dates: start: 20150609, end: 20150616
  11. NOVOSEVEN [Concomitant]
     Active Substance: COAGULATION FACTOR VIIA RECOMBINANT HUMAN
     Indication: HAEMORRHAGE
     Dosage: UNK UNK, AS NEEDED
     Route: 042
     Dates: start: 20141223
  12. IBUPROFEN AL [Concomitant]
     Active Substance: IBUPROFEN
     Indication: ARTHRITIS
     Dosage: 600 MG, AS NEEDED
     Route: 048
     Dates: start: 20141223

REACTIONS (1)
  - Device related infection [Recovered/Resolved]

NARRATIVE: CASE EVENT DATE: 20150710
